FAERS Safety Report 21785038 (Version 1)
Quarter: 2022Q4

REPORT INFORMATION
  Report Type: Spontaneous
  Country: US (occurrence: None)
  Receive Date: 20221227
  Receipt Date: 20221227
  Transmission Date: 20230113
  Serious: No
  Sender: FDA-Public Use
  Company Number: None

PATIENT
  Age: 58 Year
  Sex: Female

DRUGS (2)
  1. ESTRACE [Suspect]
     Active Substance: ESTRADIOL
     Indication: Menopause
  2. ESTRACE [Suspect]
     Active Substance: ESTRADIOL
     Indication: Menopause
     Route: 067

REACTIONS (4)
  - Hot flush [None]
  - Irritability [None]
  - Vulvovaginal dryness [None]
  - Condition aggravated [None]

NARRATIVE: CASE EVENT DATE: 20221227
